FAERS Safety Report 7636337-2 (Version None)
Quarter: 2011Q3

REPORT INFORMATION
  Report Type: 
  Country: None (occurrence: None)
  Receive Date: 20110726
  Receipt Date: 20110621
  Transmission Date: 20111222
  Serious: Yes (Hospitalization)
  Sender: FDA-Public Use
  Company Number: CA-GLAXOSMITHKLINE-A0932068A

PATIENT
  Sex: Female
  Weight: 90.9 kg

DRUGS (3)
  1. BIAXIN [Concomitant]
     Indication: PRODUCT USED FOR UNKNOWN INDICATION
     Route: 065
  2. TYLENOL W/ CODEINE NO. 3 [Concomitant]
     Indication: PRODUCT USED FOR UNKNOWN INDICATION
     Route: 065
  3. ADVAIR DISKUS 100/50 [Suspect]
     Indication: ASTHMA
     Dosage: 1PUFF TWICE PER DAY
     Route: 055

REACTIONS (10)
  - CONDITION AGGRAVATED [None]
  - COUGH [None]
  - CHEST PAIN [None]
  - DIABETES MELLITUS [None]
  - SPUTUM INCREASED [None]
  - LOWER RESPIRATORY TRACT INFECTION [None]
  - DYSPNOEA [None]
  - FEAR [None]
  - H1N1 INFLUENZA [None]
  - MEMORY IMPAIRMENT [None]
